FAERS Safety Report 8042235-5 (Version None)
Quarter: 2012Q1

REPORT INFORMATION
  Report Type: 
  Country: None (occurrence: None)
  Receive Date: 20120112
  Receipt Date: 20120111
  Transmission Date: 20120608
  Serious: Yes (Hospitalization, Other)
  Sender: FDA-Public Use
  Company Number: US-ROCHE-784042

PATIENT
  Sex: Female
  Weight: 63.56 kg

DRUGS (2)
  1. BIRTH CONTROL PILLS NOS [Concomitant]
  2. ACCUTANE [Suspect]
     Indication: PRODUCT USED FOR UNKNOWN INDICATION
     Route: 065
     Dates: start: 19851004, end: 19860101

REACTIONS (6)
  - COLITIS ULCERATIVE [None]
  - INFLAMMATORY BOWEL DISEASE [None]
  - DEPRESSION [None]
  - DRY SKIN [None]
  - INTESTINAL OBSTRUCTION [None]
  - STRESS [None]
